FAERS Safety Report 11393781 (Version 1)
Quarter: 2015Q3

REPORT INFORMATION
  Report Type: Spontaneous
  Country: US (occurrence: US)
  Receive Date: 20150819
  Receipt Date: 20150819
  Transmission Date: 20151125
  Serious: No
  Sender: FDA-Public Use
  Company Number: US-TEVA-571998USA

PATIENT
  Sex: Male

DRUGS (1)
  1. OXYMORPHONE HYDROCHLORIDE. [Suspect]
     Active Substance: OXYMORPHONE HYDROCHLORIDE
     Indication: PAIN MANAGEMENT
     Route: 065

REACTIONS (8)
  - Withdrawal syndrome [Unknown]
  - Intentional product use issue [Unknown]
  - Drug effect decreased [Unknown]
  - Drug ineffective [Unknown]
  - Hyperhidrosis [Unknown]
  - Hypertension [Unknown]
  - Product taste abnormal [Unknown]
  - Tremor [Unknown]

NARRATIVE: CASE EVENT DATE: 201506
